FAERS Safety Report 5117447-0 (Version None)
Quarter: 2006Q3

REPORT INFORMATION
  Report Type: 
  Country: None (occurrence: None)
  Receive Date: 20060929
  Receipt Date: 20060914
  Transmission Date: 20061208
  Serious: Yes (Hospitalization)
  Sender: FDA-Public Use
  Company Number: SEWYE930515SEP06

PATIENT
  Sex: Female

DRUGS (2)
  1. ENBREL [Suspect]
     Indication: RHEUMATOID ARTHRITIS
     Dosage: 50MG
     Route: 058
     Dates: start: 20040727
  2. METHOTREXATE [Concomitant]
     Dosage: 20MG
     Route: 048
     Dates: start: 20000101

REACTIONS (1)
  - TRANSIENT ISCHAEMIC ATTACK [None]
